FAERS Safety Report 6370293-2 (Version None)
Quarter: 2009Q3

REPORT INFORMATION
  Report Type: 
  Country: None (occurrence: None)
  Receive Date: 20090923
  Receipt Date: 20090911
  Transmission Date: 20100115
  Serious: Yes (Hospitalization, Other)
  Sender: FDA-Public Use
  Company Number: JP-PFIZER INC-2009213561

PATIENT
  Age: 66 Year

DRUGS (16)
  1. SILDENAFIL CITRATE [Suspect]
     Indication: PULMONARY HYPERTENSION
     Dosage: 40 MG, 1X/DAY
     Route: 048
     Dates: start: 20090313, end: 20090301
  2. SILDENAFIL CITRATE [Suspect]
     Dosage: 20 MG, 3X/DAY
     Dates: start: 20090325, end: 20090512
  3. TRACLEER [Suspect]
     Indication: PULMONARY HYPERTENSION
     Dosage: UNK
     Route: 048
     Dates: start: 20090325, end: 20090512
  4. BERAPROST SODIUM [Concomitant]
     Dosage: UNK
     Route: 048
     Dates: start: 20080722
  5. DIGOXIN [Concomitant]
     Indication: CARDIAC FAILURE
     Dosage: UNK
     Route: 048
     Dates: start: 20070706
  6. LASIX [Concomitant]
     Indication: CARDIAC FAILURE
     Dosage: UNK
     Route: 048
     Dates: start: 20060326
  7. ALDACTONE [Concomitant]
     Indication: CARDIAC FAILURE
     Dosage: UNK
     Route: 048
     Dates: start: 20070717
  8. URSO 250 [Concomitant]
     Indication: BILIARY CIRRHOSIS PRIMARY
     Dosage: UNK
     Route: 048
     Dates: start: 20060618
  9. LIVACT [Concomitant]
     Indication: HEPATITIS C
     Dosage: UNK
     Route: 048
     Dates: start: 20061211
  10. LIVACT [Concomitant]
     Indication: BILIARY CIRRHOSIS PRIMARY
  11. NAUZELIN [Concomitant]
     Indication: NAUSEA
     Dosage: UNK
     Route: 048
     Dates: start: 20070712
  12. NAUZELIN [Concomitant]
     Indication: HEPATITIS C
  13. GASTER [Concomitant]
     Indication: REFLUX OESOPHAGITIS
     Dosage: UNK
     Route: 048
     Dates: start: 20070719
  14. PORTOLAC [Concomitant]
     Dosage: UNK
     Route: 048
     Dates: start: 20080422
  15. TAURINE [Concomitant]
     Dosage: UNK
     Route: 048
     Dates: start: 20080422
  16. GOSHAJINKIGAN [Concomitant]
     Indication: PAIN IN EXTREMITY
     Dosage: UNK
     Route: 048
     Dates: start: 20070717, end: 20090819

REACTIONS (2)
  - DRUG INTERACTION [None]
  - LIVER DISORDER [None]
